FAERS Safety Report 4975510-9 (Version None)
Quarter: 2006Q2

REPORT INFORMATION
  Report Type: 
  Country: None (occurrence: None)
  Receive Date: 20060410
  Receipt Date: 20060328
  Transmission Date: 20061013
  Serious: Yes (Death, Hospitalization)
  Sender: FDA-Public Use
  Company Number: PAR_0584_2006

PATIENT
  Age: 78 Year
  Sex: Female

DRUGS (3)
  1. CAPOTEN [Suspect]
     Indication: VENOUS INSUFFICIENCY
     Dosage: 50 MG QDAY PO
     Route: 048
     Dates: start: 20050309, end: 20050101
  2. ANTALGIN /00256202/ [Suspect]
     Indication: OSTEOARTHRITIS
     Dosage: 1.1 G QDAY PO
     Route: 048
     Dates: start: 20040101, end: 20050309
  3. ACECLOFENAC [Suspect]
     Indication: OSTEOARTHRITIS
     Dosage: DF PO
     Route: 049
     Dates: start: 20040101, end: 20050309

REACTIONS (3)
  - RENAL DISORDER [None]
  - RENAL FAILURE ACUTE [None]
  - URETERAL DISORDER [None]
